FAERS Safety Report 9394351 (Version 1)
Quarter: 2013Q3

REPORT INFORMATION
  Report Type: Spontaneous
  Country: DE (occurrence: DE)
  Receive Date: 20130711
  Receipt Date: 20130711
  Transmission Date: 20140515
  Serious: Yes (Life-Threatening)
  Sender: FDA-Public Use
  Company Number: DE-ASTRAZENECA-2013SE51060

PATIENT
  Sex: Male

DRUGS (1)
  1. SEROQUEL [Suspect]
     Dosage: 80 TABLETS OF 200 MG, TOTAL DOSE: 16 G
     Route: 048
     Dates: start: 20130708

REACTIONS (1)
  - Overdose [Unknown]
